FAERS Safety Report 7973862-9 (Version None)
Quarter: 2011Q4

REPORT INFORMATION
  Report Type: 
  Country: None (occurrence: None)
  Receive Date: 20111213
  Receipt Date: 20111206
  Transmission Date: 20120403
  Serious: Yes (Hospitalization)
  Sender: FDA-Public Use
  Company Number: FR-ROCHE-759027

PATIENT
  Sex: Male
  Weight: 76 kg

DRUGS (17)
  1. PREDNISONE TAB [Suspect]
     Indication: RENAL TRANSPLANT
     Dosage: REPORTED AS CORTANCYL
     Route: 048
  2. AMLODIPINE BESYLATE [Concomitant]
     Dates: start: 20110114, end: 20110120
  3. AMLODIPINE BESYLATE [Concomitant]
  4. VALGANCICLOVIR [Concomitant]
     Dates: start: 20101225, end: 20110506
  5. MYCOPHENOLATE MOFETIL (CELLCEPT) [Suspect]
     Dosage: DOSE REDUCED IN REPONSE TO THE SAE: NON COMPRESSIVE LYMPHOCELE (RECURRENCE) AND CREATININ STAGNATION
     Route: 048
  6. CYCLOSPORINE [Suspect]
     Dosage: DOSE REDUCED IN RESPONSE TO OBSTRUCTIVE RENAL INSUFFICIENCY
     Route: 048
  7. CYCLOSPORINE [Suspect]
     Dosage: MORNING AND EVENING
     Route: 048
  8. CYCLOSPORINE [Suspect]
     Indication: RENAL TRANSPLANT
     Dosage: FREQUENCY: DAILY
     Route: 048
  9. BACTRIM [Concomitant]
     Dates: start: 20101219, end: 20110506
  10. OROCAL [Concomitant]
  11. MYCOPHENOLATE MOFETIL (CELLCEPT) [Suspect]
     Indication: RENAL TRANSPLANT
     Route: 048
  12. MYCOPHENOLATE MOFETIL (CELLCEPT) [Suspect]
     Route: 048
  13. ATORVASTATIN CALCIUM [Concomitant]
  14. PREDNISONE TAB [Suspect]
     Dosage: DOSE REDUCED IN RESPONSE TO NON COMPRESSIVE LYMPHOCELE (RECURRENCE) AND CREATININ STAGNATION AT 200U
     Route: 048
  15. OROCAL [Concomitant]
  16. MYCOPHENOLATE MOFETIL (CELLCEPT) [Suspect]
     Dosage: MORNING AND EVENING
     Route: 048
  17. AMLODIPINE BESYLATE [Concomitant]
     Dosage: IN THE MORNING

REACTIONS (4)
  - LYMPHOCELE [None]
  - PYELONEPHRITIS ACUTE [None]
  - RENAL FAILURE [None]
  - SEPSIS [None]
